FAERS Safety Report 8108467-2 (Version None)
Quarter: 2012Q1

REPORT INFORMATION
  Report Type: 
  Country: None (occurrence: None)
  Receive Date: 20120202
  Receipt Date: 20120131
  Transmission Date: 20120608
  Serious: Yes (Death)
  Sender: FDA-Public Use
  Company Number: PHEH2011US012107

PATIENT
  Sex: Female

DRUGS (2)
  1. RECLAST [Suspect]
     Indication: OSTEOPOROSIS
     Dosage: UNK UKN, UNK
     Route: 042
  2. ANTIHISTAMINES [Concomitant]

REACTIONS (3)
  - LOSS OF CONSCIOUSNESS [None]
  - CARDIAC ARREST [None]
  - CHEST PAIN [None]
